FAERS Safety Report 4554458-8 (Version None)
Quarter: 2004Q4

REPORT INFORMATION
  Report Type: 
  Country: None (occurrence: None)
  Receive Date: 20041222
  Receipt Date: 20040828
  Transmission Date: 20050328
  Serious: Yes (Other)
  Sender: FDA-Public Use
  Company Number: 2004046842

PATIENT
  Age: 58 Year
  Sex: Female
  Weight: 65.7716 kg

DRUGS (3)
  1. ZITHROMAX [Suspect]
     Indication: PHARYNGOLARYNGEAL PAIN
     Dosage: 500 MG, (500 MG, 1 IN 1 D), ORAL
     Route: 048
     Dates: start: 20040602, end: 20040602
  2. ZITHROMAX [Suspect]
     Indication: SINUSITIS
     Dosage: 500 MG, (500 MG, 1 IN 1 D), ORAL
     Route: 048
     Dates: start: 20040602, end: 20040602
  3. ENDAL (GUAIFENESIN, PHENYLEPHRINE HYDROCHLORIDE) [Concomitant]

REACTIONS (6)
  - BLISTER [None]
  - MUSCULOSKELETAL STIFFNESS [None]
  - OROPHARYNGEAL SWELLING [None]
  - PAIN [None]
  - RASH [None]
  - THROAT TIGHTNESS [None]
